FAERS Safety Report 18377800 (Version 2)
Quarter: 2020Q4

REPORT INFORMATION
  Report Type: Spontaneous
  Country: US (occurrence: US)
  Receive Date: 20201013
  Receipt Date: 20201026
  Transmission Date: 20210114
  Serious: Yes (Other)
  Sender: FDA-Public Use
  Company Number: US-SHIRE-US202032849

PATIENT
  Age: 11 Year
  Sex: Male

DRUGS (1)
  1. 433 (CARBAMAZEPINE) [Suspect]
     Active Substance: CARBAMAZEPINE
     Indication: EPILEPSY
     Dosage: 500 MILLIGRAM; 200 MG IN MORNING AND 300 MG IN AFTERNOON
     Route: 048

REACTIONS (1)
  - Ocular lymphoma [Unknown]
